FAERS Safety Report 15122789 (Version 1)
Quarter: 2018Q3

REPORT INFORMATION
  Report Type: Spontaneous
  Country: US (occurrence: US)
  Receive Date: 20180613
  Receipt Date: 20180613
  Transmission Date: 20181010
  Serious: Yes (Disabling)
  Sender: FDA-Public Use
  Company Number: None

PATIENT
  Age: 71 Year
  Sex: Female
  Weight: 117 kg

DRUGS (1)
  1. TREMFYA [Suspect]
     Active Substance: GUSELKUMAB
     Indication: PSORIASIS
     Route: 042
     Dates: start: 20180503, end: 20180504

REACTIONS (7)
  - Inflammation [None]
  - Onychomadesis [None]
  - Urinary tract infection [None]
  - Onychoclasis [None]
  - Nail discolouration [None]
  - Peripheral swelling [None]
  - Skin disorder [None]
